FAERS Safety Report 8245117-9 (Version None)
Quarter: 2012Q1

REPORT INFORMATION
  Report Type: 
  Country: None (occurrence: None)
  Receive Date: 20120329
  Receipt Date: 20120322
  Transmission Date: 20120608
  Serious: Yes (Hospitalization)
  Sender: FDA-Public Use
  Company Number: BR-GLAXOSMITHKLINE-B0791492A

PATIENT
  Sex: Female
  Weight: 66 kg

DRUGS (4)
  1. PROPAFENONE HCL [Suspect]
     Indication: ARRHYTHMIA
     Dosage: 300MG PER DAY
     Route: 048
     Dates: start: 20100101
  2. AMILORIDE HYDROCHLORIDE [Concomitant]
     Indication: BLOOD PRESSURE
     Dosage: 25MG IN THE MORNING
     Route: 048
  3. METOPROLOL SUCCINATE [Concomitant]
     Dosage: 25MG IN THE MORNING
     Route: 048
     Dates: start: 20110601
  4. SIMVASTATIN [Concomitant]
     Indication: BLOOD CHOLESTEROL
     Dosage: 1TAB AT NIGHT
     Route: 048

REACTIONS (4)
  - PLATELET COUNT DECREASED [None]
  - DYSPNOEA [None]
  - HEART RATE INCREASED [None]
  - ANXIETY [None]
